FAERS Safety Report 21401847 (Version 1)
Quarter: 2022Q4

REPORT INFORMATION
  Report Type: Spontaneous
  Country: CZ (occurrence: CZ)
  Receive Date: 20221003
  Receipt Date: 20221003
  Transmission Date: 20230112
  Serious: Yes (Other)
  Sender: FDA-Public Use
  Company Number: CZ-GLAXOSMITHKLINE-CZ2022EME132254

PATIENT
  Age: 42 Year
  Sex: Female

DRUGS (14)
  1. SUMATRIPTAN [Suspect]
     Active Substance: SUMATRIPTAN
     Indication: Migraine
     Dosage: 50 MILLIGRAM, ONCE A DAY
     Route: 065
  2. SUMATRIPTAN [Suspect]
     Active Substance: SUMATRIPTAN
     Indication: Analgesic therapy
  3. AMITRIPTYLINE [Suspect]
     Active Substance: AMITRIPTYLINE
     Indication: Analgesic therapy
     Dosage: 25 MILLIGRAM, ONCE A DAY
     Route: 065
  4. AMITRIPTYLINE [Suspect]
     Active Substance: AMITRIPTYLINE
     Indication: Migraine
  5. VENLAFAXINE [Suspect]
     Active Substance: VENLAFAXINE HYDROCHLORIDE
     Indication: Migraine
     Dosage: UNK
     Route: 065
  6. VENLAFAXINE [Suspect]
     Active Substance: VENLAFAXINE HYDROCHLORIDE
     Indication: Analgesic therapy
  7. INDOMETHACIN [Suspect]
     Active Substance: INDOMETHACIN
     Indication: Migraine
     Dosage: UNK (20/MONTH)
     Route: 065
  8. INDOMETHACIN [Suspect]
     Active Substance: INDOMETHACIN
     Indication: Analgesic therapy
  9. NAPROXEN [Suspect]
     Active Substance: NAPROXEN
     Indication: Analgesic therapy
     Dosage: UNK (10-12/MONTH)
     Route: 065
  10. NAPROXEN [Suspect]
     Active Substance: NAPROXEN
     Indication: Migraine
  11. TOPIRAMATE [Suspect]
     Active Substance: TOPIRAMATE
     Indication: Migraine
     Dosage: 75 MILLIGRAM, ONCE A DAY
     Route: 065
  12. TOPIRAMATE [Suspect]
     Active Substance: TOPIRAMATE
     Indication: Analgesic therapy
  13. CINNARIZINE [Suspect]
     Active Substance: CINNARIZINE
     Indication: Analgesic therapy
     Dosage: 100 MILLIGRAM, ONCE A DAY (FOR 2.5 YEARS)
     Route: 065
  14. CINNARIZINE [Suspect]
     Active Substance: CINNARIZINE
     Indication: Migraine

REACTIONS (4)
  - Drug dependence [Recovering/Resolving]
  - Toxicity to various agents [Recovering/Resolving]
  - Medication overuse headache [Recovering/Resolving]
  - Treatment noncompliance [Unknown]
